FAERS Safety Report 5893834-8 (Version None)
Quarter: 2008Q3

REPORT INFORMATION
  Report Type: 
  Country: None (occurrence: None)
  Receive Date: 20080923
  Receipt Date: 20071030
  Transmission Date: 20090109
  Serious: No
  Sender: FDA-Public Use
  Company Number: US-ASTRAZENECA-2007UW25186

PATIENT
  Age: 35 Year
  Sex: Female
  Weight: 72.6 kg

DRUGS (6)
  1. SEROQUEL [Suspect]
     Indication: SCHIZOPHRENIA
     Route: 048
     Dates: start: 20070801
  2. SEROQUEL [Suspect]
     Route: 048
     Dates: start: 20071001
  3. ADDERALL 10 [Concomitant]
  4. TRAZODONE HCL [Concomitant]
  5. ZOLOFT [Concomitant]
  6. LEXAPRO [Concomitant]
     Dates: start: 20071030

REACTIONS (4)
  - DIZZINESS [None]
  - FEELING OF BODY TEMPERATURE CHANGE [None]
  - HYPERHIDROSIS [None]
  - PYREXIA [None]
